FAERS Safety Report 8473929 (Version 3)
Quarter: 2012Q4

REPORT INFORMATION
  Report Type: 
  Country: US (occurrence: US)
  Receive Date: 20120323
  Receipt Date: 20121204
  Transmission Date: 20130627
  Serious: Yes (Hospitalization, Other)
  Sender: FDA-Public Use
  Company Number: US-PFIZER INC-2012071536

PATIENT
  Age: 52 Year
  Sex: Female
  Weight: 58.96 kg

DRUGS (9)
  1. LYRICA [Suspect]
     Indication: FIBROMYALGIA
     Dosage: 75 mg, 2x/day (25mg 1 po bid, 50mg 1 po bid)
     Route: 048
  2. LYRICA [Suspect]
     Indication: LUPUS SYNDROME
     Dosage: 100 mg (25mg capsule + 75mg capsule in morning), 1x/day
     Route: 048
  3. BELIMUMAB [Concomitant]
     Indication: LUPUS SYNDROME
     Dosage: 700 mg, UNK
     Route: 042
  4. METHOTREXATE [Concomitant]
     Indication: LUPUS SYNDROME
     Dosage: UNK
     Route: 048
  5. HYDROXYCHLOROQUINE [Concomitant]
     Dosage: UNK
  6. PRISTIQ [Concomitant]
     Dosage: UNK
  7. LAMICTAL [Concomitant]
     Dosage: UNK
  8. LAMICTAL [Concomitant]
     Dosage: UNK
  9. CIPROFLOXACIN [Concomitant]
     Dosage: UNK

REACTIONS (11)
  - Systemic lupus erythematosus [Unknown]
  - Convulsion [Unknown]
  - Epilepsy [Unknown]
  - Brain injury [Unknown]
  - Spinal column stenosis [Unknown]
  - Infection [Unknown]
  - Fall [Unknown]
  - Brain compression [Unknown]
  - Influenza [Unknown]
  - Pyrexia [Unknown]
  - Off label use [Unknown]
